FAERS Safety Report 25890201 (Version 1)
Quarter: 2025Q4

REPORT INFORMATION
  Report Type: Other
  Country: EU (occurrence: EU)
  Receive Date: 20251007
  Receipt Date: 20251007
  Transmission Date: 20260118
  Serious: Yes (Death, Hospitalization, Other)
  Sender: CHANGZHOU PHARMACEUTICAL FACTORY
  Company Number: EU-Changzhou Pharmaceutical Factory-2186083

PATIENT
  Age: 3 Decade
  Sex: Male

DRUGS (13)
  1. PREGABALIN [Suspect]
     Active Substance: PREGABALIN
     Indication: Product used for unknown indication
  2. AMPHETAMINE SULFATE [Suspect]
     Active Substance: AMPHETAMINE SULFATE
  3. CIPROFLOXACIN [Suspect]
     Active Substance: CIPROFLOXACIN
  4. SILDENAFIL [Suspect]
     Active Substance: SILDENAFIL
  5. HERBALS\TETRAHYDROCANNABINOL UNSPECIFIED [Suspect]
     Active Substance: HERBALS\TETRAHYDROCANNABINOL UNSPECIFIED
  6. OXAZEPAM [Suspect]
     Active Substance: OXAZEPAM
  7. OXYCODONE [Suspect]
     Active Substance: OXYCODONE
  8. OLANZAPINE [Suspect]
     Active Substance: OLANZAPINE
  9. 7-AMINONITRAZEPAM [Suspect]
     Active Substance: 7-AMINONITRAZEPAM
  10. ALPRAZOLAM [Suspect]
     Active Substance: ALPRAZOLAM
  11. ETONITAZEPYNE [Suspect]
     Active Substance: ETONITAZEPYNE
  12. NORDAZEPAM [Suspect]
     Active Substance: NORDAZEPAM
  13. DIAZEPAM [Suspect]
     Active Substance: DIAZEPAM

REACTIONS (5)
  - Loss of consciousness [Fatal]
  - Toxicity to various agents [Fatal]
  - Cyanosis [Fatal]
  - Respiratory arrest [Fatal]
  - Unresponsive to stimuli [Fatal]

NARRATIVE: CASE EVENT DATE: 20211201
